FAERS Safety Report 6898502-1 (Version None)
Quarter: 2010Q3

REPORT INFORMATION
  Report Type: 
  Country: None (occurrence: None)
  Receive Date: 20100802
  Receipt Date: 20071027
  Transmission Date: 20110219
  Serious: Yes (Other)
  Sender: FDA-Public Use
  Company Number: US-PFIZER INC-2007076018

PATIENT
  Sex: Male
  Weight: 79 kg

DRUGS (4)
  1. LYRICA [Suspect]
     Indication: SLEEP APNOEA SYNDROME
     Route: 048
     Dates: start: 20070801
  2. LYRICA [Suspect]
     Indication: DYSKINESIA
  3. TOPAMAX [Concomitant]
  4. AVODART [Concomitant]
     Indication: PROSTATOMEGALY

REACTIONS (7)
  - CHEST PAIN [None]
  - GROIN PAIN [None]
  - NIPPLE SWELLING [None]
  - OFF LABEL USE [None]
  - PARAESTHESIA [None]
  - POOR QUALITY SLEEP [None]
  - RASH [None]
